FAERS Safety Report 16903589 (Version 5)
Quarter: 2020Q3

REPORT INFORMATION
  Report Type: Spontaneous
  Country: US (occurrence: US)
  Receive Date: 20191010
  Receipt Date: 20200710
  Transmission Date: 20201102
  Serious: Yes (Hospitalization)
  Sender: FDA-Public Use
  Company Number: US-PFIZER INC-2019433779

PATIENT
  Age: 86 Year
  Sex: Male
  Weight: 71.66 kg

DRUGS (11)
  1. RASAGILINE MESYLATE. [Suspect]
     Active Substance: RASAGILINE MESYLATE
     Indication: PARKINSON^S DISEASE
     Dosage: 1 MG, 1X/DAY
     Route: 048
     Dates: start: 200504
  2. RYTARY [Suspect]
     Active Substance: CARBIDOPA\LEVODOPA
     Dosage: CARBIDOPA 23.7 M/G? LEVODOPA 95 M/G AT 6 CAPSULES A DAY
     Dates: start: 20191216
  3. CARBIDOPA/LEVODOPA [Concomitant]
     Active Substance: CARBIDOPA\LEVODOPA
     Indication: PARKINSON^S DISEASE
     Dosage: 0.5 DF, 3X/DAY(CARBIDOPA25MG/LEVODOPA100MG TABLET, TAKES 1/2 TABLET THREE TIMES A DAY)
     Dates: start: 202006
  4. METOPROLOL. [Suspect]
     Active Substance: METOPROLOL
     Dosage: 50 MG, 1X/DAY
     Dates: start: 20191213
  5. VYNDAQEL [Suspect]
     Active Substance: TAFAMIDIS MEGLUMINE
     Indication: AMYLOIDOSIS
     Dosage: 80 MG, 1X/DAY
     Route: 048
     Dates: start: 20190823
  6. METOPROLOL. [Suspect]
     Active Substance: METOPROLOL
     Indication: CARDIAC FAILURE
     Dosage: 25 MG, DAILY
     Route: 048
     Dates: start: 201812
  7. METOPROLOL. [Suspect]
     Active Substance: METOPROLOL
     Dosage: 25 MG, 1X/DAY
     Dates: start: 201901
  8. VYNDAQEL [Suspect]
     Active Substance: TAFAMIDIS MEGLUMINE
     Dosage: 80 MG, 1X/DAY
     Route: 048
  9. VYNDAQEL [Suspect]
     Active Substance: TAFAMIDIS MEGLUMINE
     Dosage: 80 MG, 1X/DAY  (FOUR 20MG CAPSULES IN THE MORNING)
  10. RYTARY [Suspect]
     Active Substance: CARBIDOPA\LEVODOPA
     Indication: PARKINSON^S DISEASE
     Dosage: 125 MG, 3X/DAY
     Route: 048
  11. RYTARY [Suspect]
     Active Substance: CARBIDOPA\LEVODOPA
     Dosage: CARBIDOPA 48.75MG? LEVODOPA 195MG 3 TIMES A DAY
     Dates: start: 201604

REACTIONS (6)
  - Dizziness [Not Recovered/Not Resolved]
  - Head discomfort [Not Recovered/Not Resolved]
  - Weight decreased [Not Recovered/Not Resolved]
  - Fatigue [Not Recovered/Not Resolved]
  - Condition aggravated [Not Recovered/Not Resolved]
  - Dyspnoea [Not Recovered/Not Resolved]

NARRATIVE: CASE EVENT DATE: 201909
